FAERS Safety Report 16138531 (Version 2)
Quarter: 2019Q2

REPORT INFORMATION
  Report Type: Spontaneous
  Country: BR (occurrence: BR)
  Receive Date: 20190401
  Receipt Date: 20190506
  Transmission Date: 20190711
  Serious: Yes (Other)
  Sender: FDA-Public Use
  Company Number: BR-SA-2019SA084090

PATIENT
  Sex: Male
  Weight: 100 kg

DRUGS (6)
  1. NOVOLIN [Concomitant]
     Active Substance: INSULIN HUMAN
     Dosage: 10 TO 12 UNITS; 3 TIMES A DAY
     Route: 065
  2. LANTUS [Suspect]
     Active Substance: INSULIN GLARGINE
     Dosage: 20 IU, BID
     Route: 065
  3. AUTOPEN 24 [Suspect]
     Active Substance: DEVICE
  4. LANTUS [Suspect]
     Active Substance: INSULIN GLARGINE
     Dosage: 40 IU, QD
  5. GLIFAGE [Concomitant]
     Active Substance: METFORMIN HYDROCHLORIDE
     Dosage: UNK UNK, TID
     Route: 065
  6. NESINA [Concomitant]
     Active Substance: ALOGLIPTIN BENZOATE

REACTIONS (9)
  - Blood glucose fluctuation [Unknown]
  - Off label use [Unknown]
  - Glaucoma [Recovered/Resolved]
  - Eye operation [Unknown]
  - Varicose vein [Recovered/Resolved]
  - Muscle spasms [Not Recovered/Not Resolved]
  - Prostate cancer [Recovered/Resolved]
  - Cataract [Recovered/Resolved]
  - Visual impairment [Unknown]

NARRATIVE: CASE EVENT DATE: 2010
